FAERS Safety Report 6886798-1 (Version None)
Quarter: 2010Q3

REPORT INFORMATION
  Report Type: 
  Country: None (occurrence: None)
  Receive Date: 20100730
  Receipt Date: 20100721
  Transmission Date: 20110219
  Serious: Yes (Death, Hospitalization)
  Sender: FDA-Public Use
  Company Number: AU-PFIZER INC-2010079737

PATIENT
  Age: 40 Year
  Sex: Male
  Weight: 50 kg

DRUGS (2)
  1. FLUCONAZOLE [Suspect]
     Indication: FUNGAL PERITONITIS
     Dosage: UNK
     Route: 033
  2. WARFARIN [Concomitant]

REACTIONS (1)
  - SEPSIS [None]
